FAERS Safety Report 6297316-3 (Version None)
Quarter: 2009Q3

REPORT INFORMATION
  Report Type: 
  Country: None (occurrence: None)
  Receive Date: 20090805
  Receipt Date: 20090727
  Transmission Date: 20100115
  Serious: Yes (Hospitalization)
  Sender: FDA-Public Use
  Company Number: FR-PFIZER INC-2009227371

PATIENT
  Age: 65 Year

DRUGS (2)
  1. SILDENAFIL CITRATE [Suspect]
     Indication: PULMONARY HYPERTENSION
     Dosage: 20 MG, 3X/DAY
     Dates: start: 20090101
  2. TRACLEER [Suspect]
     Indication: PULMONARY HYPERTENSION

REACTIONS (1)
  - ACUTE PULMONARY OEDEMA [None]
